FAERS Safety Report 5919931-6 (Version None)
Quarter: 2008Q3

REPORT INFORMATION
  Report Type: 
  Country: None (occurrence: None)
  Receive Date: 20080909
  Receipt Date: 20071010
  Transmission Date: 20090109
  Serious: Yes (Death)
  Sender: FDA-Public Use
  Company Number: 163-20785-07070954

PATIENT
  Age: 49 Year
  Sex: Male
  Weight: 69.8539 kg

DRUGS (8)
  1. THALOMID [Suspect]
     Indication: PANCREATITIS
     Dosage: 100 MG, QD, ORAL
     Route: 048
     Dates: start: 20061207, end: 20070524
  2. METHADONE HCL [Suspect]
     Indication: DRUG USE FOR UNKNOWN INDICATION
     Dosage: 30 MG, IN DIVIDED DOSES QD, ORAL
     Route: 048
  3. OXYCONTIN [Concomitant]
  4. PHENOBARBITAL TAB [Concomitant]
  5. PRILOSEC [Concomitant]
  6. PANGESTYME MT-16 (NORTASE) [Concomitant]
  7. CHROMIUM PICOLINATE (CHROMIUM PICOLINATE) [Concomitant]
  8. MULTIVITAMIN [Concomitant]

REACTIONS (1)
  - OVERDOSE [None]
